FAERS Safety Report 20175332 (Version 1)
Quarter: 2021Q4

REPORT INFORMATION
  Report Type: Spontaneous
  Country: US (occurrence: US)
  Receive Date: 20211213
  Receipt Date: 20211213
  Transmission Date: 20220303
  Serious: No
  Sender: FDA-Public Use
  Company Number: US-JNJFOC-20211204592

PATIENT
  Age: 3 Month
  Sex: Female

DRUGS (3)
  1. TYLENOL [Suspect]
     Active Substance: ACETAMINOPHEN
     Indication: Chemical burn
     Route: 065
     Dates: start: 20211119
  2. TYLENOL [Suspect]
     Active Substance: ACETAMINOPHEN
     Indication: Hypersensitivity
  3. AVEENO BABY ECZEMA THERAPY [Concomitant]
     Active Substance: OATMEAL
     Indication: Product used for unknown indication
     Route: 061
     Dates: start: 20211119

REACTIONS (2)
  - Product use in unapproved indication [Unknown]
  - Off label use [Unknown]

NARRATIVE: CASE EVENT DATE: 20211119
